FAERS Safety Report 23627457 (Version 2)
Quarter: 2024Q1

REPORT INFORMATION
  Report Type: Spontaneous
  Country: BR (occurrence: BR)
  Receive Date: 20240313
  Receipt Date: 20240323
  Transmission Date: 20240410
  Serious: Yes (Other)
  Sender: FDA-Public Use
  Company Number: BR-002147023-NVSC2024BR051650

PATIENT
  Sex: Female
  Weight: 55 kg

DRUGS (10)
  1. FEMARA [Suspect]
     Active Substance: LETROZOLE
     Indication: Breast cancer
     Dosage: UNK (1 TABLET PER DAY EVERY 21 DAYS AND PAUSE OF 7 DAYS AND 1 TABLET PER DAY) 2.5 WITH 28 CAPSULES,
     Route: 048
     Dates: start: 2019
  2. IBRANCE [Concomitant]
     Active Substance: PALBOCICLIB
     Indication: Breast cancer
     Dosage: 1 DOSAGE FORM, QD (1 TABLET PER DAY FOR 21 DAYS, BEGINNING OF 2019)
     Route: 048
     Dates: start: 2019
  3. VITA D [Concomitant]
     Indication: Prophylaxis
     Dosage: UNK, QMO (ONCE A MONTH, 1 TABLET PER MONTH, 3 YEARS AGO)
     Route: 048
  4. CHELATED MAGNESIUM [Concomitant]
     Indication: Product used for unknown indication
     Dosage: 1 DOSAGE FORM, Q12H (1 TABLET), 3 YEARS AGO)
     Route: 048
  5. LEVOTHYROXINE [Concomitant]
     Active Substance: LEVOTHYROXINE\LEVOTHYROXINE SODIUM
     Indication: Thyroid disorder
     Dosage: 1 DOSAGE FORM, QD (1 TABLET ON  AN EMPTY STOMACH) 3 YEARS AGO)
     Route: 048
  6. LEVOTHYROXINE [Concomitant]
     Active Substance: LEVOTHYROXINE\LEVOTHYROXINE SODIUM
     Indication: Prophylaxis
  7. CALCIUM [Concomitant]
     Active Substance: CALCIUM
     Indication: Bone disorder
     Dosage: 5 DOSAGE FORM, QD (TOTAL, 3 YEARS AGO)
     Route: 048
  8. FERROUS SULFATE [Concomitant]
     Active Substance: FERROUS SULFATE
     Indication: Prophylaxis
     Dosage: UNK (1 TABLET AT LUNCH AND 1 TABLET AT DINNER, 3 YEARS AGO)
     Route: 048
  9. ASPIRIN [Concomitant]
     Active Substance: ASPIRIN
     Indication: Prophylaxis
     Dosage: 1 DOSAGE FORM, QD (ONE TABLET AT LUNCH)
     Route: 048
  10. CALCITRIOL [Concomitant]
     Active Substance: CALCITRIOL
     Indication: Bone disorder
     Dosage: 2 DOSAGE FORM QD (2 TABLETS PER DAY, 3 YEARS AGO)
     Route: 048

REACTIONS (1)
  - Chronic kidney disease [Not Recovered/Not Resolved]

NARRATIVE: CASE EVENT DATE: 20210101
